FAERS Safety Report 25205908 (Version 1)
Quarter: 2025Q2

REPORT INFORMATION
  Report Type: Spontaneous
  Country: HK (occurrence: HK)
  Receive Date: 20250417
  Receipt Date: 20250417
  Transmission Date: 20250717
  Serious: Yes (Other)
  Sender: UNICHEM
  Company Number: HK-UNICHEM LABORATORIES LIMITED-UNI-2025-HK-001871

PATIENT

DRUGS (1)
  1. AMLODIPINE [Suspect]
     Active Substance: AMLODIPINE BESYLATE
     Indication: Product used for unknown indication
     Route: 065

REACTIONS (3)
  - Overdose [Unknown]
  - Shock [Recovering/Resolving]
  - Lactic acidosis [Recovering/Resolving]
